FAERS Safety Report 8921263 (Version 4)
Quarter: 2014Q1

REPORT INFORMATION
  Report Type: Report from Study
  Country: JP (occurrence: JP)
  Receive Date: 20121121
  Receipt Date: 20140306
  Transmission Date: 20141002
  Serious: Yes (Other)
  Sender: FDA-Public Use
  Company Number: JP-VERTEX PHARMACEUTICAL INC.-2012-024977

PATIENT
  Age: 59 Year
  Sex: Female

DRUGS (16)
  1. VX-950 (TELAPREVIR) [Suspect]
     Indication: CHRONIC HEPATITIS C
     Dosage: 1500 MG, QD
     Route: 048
     Dates: start: 20120803, end: 20121026
  2. RIBAVIRIN [Suspect]
     Indication: CHRONIC HEPATITIS C
     Dosage: 600 MG, QD
     Route: 048
     Dates: start: 20120803, end: 20120816
  3. RIBAVIRIN [Suspect]
     Dosage: 400 MG, QD
     Route: 048
     Dates: start: 20120817, end: 20130124
  4. PEGINTERFERON ALFA-2B [Suspect]
     Indication: CHRONIC HEPATITIS C
     Dosage: 1.5 ?G/KG, QW
     Route: 058
     Dates: start: 20120803, end: 20120920
  5. PEGINTERFERON ALFA-2B [Suspect]
     Dosage: 1.36 ?G/KG, QW
     Route: 058
     Dates: start: 20120921, end: 20120927
  6. PEGINTERFERON ALFA-2B [Suspect]
     Dosage: 1.5 ?G/KG, QW
     Route: 058
     Dates: start: 20120928, end: 20121005
  7. PEGINTERFERON ALFA-2B [Suspect]
     Dosage: 1.36 ?G/KG, QW
     Route: 058
     Dates: start: 20121012, end: 20121018
  8. PEGINTERFERON ALFA-2B [Suspect]
     Dosage: 1.5 ?G/KG, QW
     Route: 058
     Dates: start: 20121019, end: 20130118
  9. URSO [Concomitant]
     Dosage: 600 MG, QD
     Route: 048
  10. SP TROCHES [Concomitant]
     Dosage: 0.25 MG, PRN
     Route: 048
     Dates: start: 20120817, end: 20120820
  11. CRAVIT [Concomitant]
     Dosage: UNK, PRN
     Route: 047
     Dates: start: 20120928, end: 20121116
  12. FLAVITAN [Concomitant]
     Dosage: UNK, PRN
     Route: 047
  13. FLAVITAN [Concomitant]
     Dosage: UNK, PRN
     Route: 047
     Dates: start: 20121116
  14. HYALEIN [Concomitant]
     Dosage: UNK, PRN
     Route: 047
  15. HYALEIN [Concomitant]
     Dosage: UNK, PRN
     Route: 047
     Dates: start: 20121116
  16. CHONDRON [Concomitant]
     Dosage: UNK, PRN
     Route: 047

REACTIONS (2)
  - White blood cell count decreased [Recovered/Resolved]
  - White blood cell count decreased [Recovered/Resolved]
